FAERS Safety Report 12991618 (Version 4)
Quarter: 2017Q1

REPORT INFORMATION
  Report Type: Spontaneous
  Country: GB (occurrence: GB)
  Receive Date: 20161201
  Receipt Date: 20170227
  Transmission Date: 20170428
  Serious: Yes (Hospitalization, Other)
  Sender: FDA-Public Use
  Company Number: GB-009507513-1611GBR014003

PATIENT
  Age: 85 Year
  Sex: Male

DRUGS (13)
  1. COLONY STIMULATING FACTOR (UNSPECIFIED) [Concomitant]
     Active Substance: UNSPECIFIED INGREDIENT
     Indication: NEUTROPENIA
     Dosage: 5 MG, 1 IN 1 D
     Route: 048
  2. CHOLECALCIFEROL [Concomitant]
     Active Substance: CHOLECALCIFEROL
     Indication: VITAMIN D DEFICIENCY
     Dosage: 1000 IU, UNK
     Route: 048
  3. DEXAMETHASONE. [Suspect]
     Active Substance: DEXAMETHASONE
     Indication: PLASMA CELL MYELOMA
     Dosage: 20 MG PER DAY ONCE IN A WEEK (20 MG, 1 IN 1 WK)
     Route: 041
     Dates: start: 20160803, end: 20160824
  4. DEXAMETHASONE. [Suspect]
     Active Substance: DEXAMETHASONE
     Dosage: UNK , QW (1 IN 1 WK)
     Route: 048
     Dates: end: 20161102
  5. BENDROFLUMETHIAZIDE [Concomitant]
     Active Substance: BENDROFLUMETHIAZIDE
     Indication: ESSENTIAL HYPERTENSION
     Dosage: 2.5 MG, 1 IN 1 D
     Route: 048
  6. MOMETASONE FUROATE. [Concomitant]
     Active Substance: MOMETASONE FUROATE
     Dosage: 100 MCG , 2 IN 1 D
     Route: 045
  7. DARATUMUMAB [Suspect]
     Active Substance: DARATUMUMAB
     Dosage: 976 MG (976 MG, 2 IN 1M)
     Route: 041
     Dates: start: 20160831, end: 20161026
  8. MOMETASONE FUROATE. [Concomitant]
     Active Substance: MOMETASONE FUROATE
     Indication: RHINITIS
     Dosage: 50 MCG , 2 IN 1 D
     Route: 045
  9. DEXAMETHASONE. [Suspect]
     Active Substance: DEXAMETHASONE
     Dosage: 20 MG (ALSO REPORTED AS 2.5 MG), 1 IN 1 WK
     Route: 065
     Dates: start: 20160831
  10. DARATUMUMAB [Suspect]
     Active Substance: DARATUMUMAB
     Indication: PLASMA CELL MYELOMA
     Dosage: 960 MG TWICE IN A MONTH (960 MG, 2 IN 1 M)
     Route: 041
     Dates: start: 20160803, end: 20160824
  11. REVLIMID [Suspect]
     Active Substance: LENALIDOMIDE
     Indication: PLASMA CELL MYELOMA
     Dosage: 25 MG,1 IN 1 D
     Route: 048
     Dates: start: 20160803, end: 20161106
  12. REVLIMID [Suspect]
     Active Substance: LENALIDOMIDE
     Dosage: UNK
     Route: 065
     Dates: start: 20161106, end: 20161106
  13. AMLODIPINE [Concomitant]
     Active Substance: AMLODIPINE BESYLATE
     Indication: ESSENTIAL HYPERTENSION
     Dosage: 5 MG, 1 IN 1 D
     Route: 048

REACTIONS (1)
  - Acute kidney injury [Recovered/Resolved with Sequelae]

NARRATIVE: CASE EVENT DATE: 20161107
